FAERS Safety Report 8581805 (Version 5)
Quarter: 2013Q1

REPORT INFORMATION
  Report Type: Spontaneous
  Country: US (occurrence: US)
  Receive Date: 20120528
  Receipt Date: 20130304
  Transmission Date: 20140127
  Serious: Yes (Hospitalization)
  Sender: FDA-Public Use
  Company Number: US-BIOGENIDEC-2012BI017797

PATIENT
  Age: 56 Year
  Sex: Female

DRUGS (1)
  1. TYSABRI [Suspect]
     Indication: MULTIPLE SCLEROSIS
     Route: 042
     Dates: start: 20090529

REACTIONS (11)
  - Cystitis noninfective [Recovered/Resolved]
  - Procedural intestinal perforation [Recovered/Resolved]
  - Hysterectomy [Recovered/Resolved]
  - Post procedural infection [Recovered/Resolved]
  - Thrombosis [Recovered/Resolved]
  - Generalised oedema [Recovered/Resolved]
  - Decubitus ulcer [Not Recovered/Not Resolved]
  - Transfusion [Recovered/Resolved]
  - Memory impairment [Not Recovered/Not Resolved]
  - Catheter site inflammation [Recovered/Resolved]
  - Alopecia [Recovered/Resolved]
